FAERS Safety Report 8185589-1 (Version None)
Quarter: 2012Q1

REPORT INFORMATION
  Report Type: 
  Country: None (occurrence: None)
  Receive Date: 20120305
  Receipt Date: 20120228
  Transmission Date: 20120608
  Serious: Yes (Other)
  Sender: FDA-Public Use
  Company Number: PHHY2011US05388

PATIENT
  Sex: Female

DRUGS (1)
  1. GILENYA [Suspect]
     Indication: MULTIPLE SCLEROSIS
     Dosage: 0.5 MG, QD
     Route: 048
     Dates: start: 20101217

REACTIONS (8)
  - MULTIPLE SCLEROSIS RELAPSE [None]
  - DRUG INEFFECTIVE [None]
  - FATIGUE [None]
  - INFLUENZA [None]
  - HEADACHE [None]
  - DYSPNOEA [None]
  - ABDOMINAL PAIN UPPER [None]
  - IMMUNE SYSTEM DISORDER [None]
